FAERS Safety Report 8094844-5 (Version None)
Quarter: 2012Q1

REPORT INFORMATION
  Report Type: 
  Country: None (occurrence: None)
  Receive Date: 20120129
  Receipt Date: 20120116
  Transmission Date: 20120608
  Serious: Yes (Hospitalization)
  Sender: FDA-Public Use
  Company Number: GB-MYLANLABS-2012S1001088

PATIENT
  Age: 67 Year
  Sex: Female
  Weight: 61 kg

DRUGS (6)
  1. FELODIPINE [Concomitant]
     Indication: HYPERTENSION
  2. METFORMIN HCL [Concomitant]
     Indication: TYPE 2 DIABETES MELLITUS
     Route: 048
  3. IRBESARTAN [Concomitant]
     Indication: HYPERTENSION
     Route: 048
  4. MIRTAZAPINE [Suspect]
     Indication: DEPRESSED MOOD
     Route: 048
     Dates: start: 20110621, end: 20110719
  5. MIRTAZAPINE [Suspect]
     Indication: ANXIETY
     Route: 048
     Dates: start: 20110621, end: 20110719
  6. ATORVASTATIN [Concomitant]
     Indication: HYPERTENSION
     Route: 048

REACTIONS (5)
  - CHILLS [None]
  - ANAEMIA [None]
  - GLOMERULAR FILTRATION RATE DECREASED [None]
  - BLOOD CREATININE INCREASED [None]
  - ASTHENIA [None]
